FAERS Safety Report 23185996 (Version 1)
Quarter: 2023Q4

REPORT INFORMATION
  Report Type: Other
  Country: None (occurrence: IN)
  Receive Date: 20231115
  Receipt Date: 20231115
  Transmission Date: 20240110
  Serious: Yes (Death)
  Sender: FDA-Public Use
  Company Number: IN-B.Braun Medical Inc.-2148311

PATIENT
  Age: 23 Day
  Sex: Female

DRUGS (10)
  1. MEROPENEM\SODIUM CHLORIDE [Suspect]
     Active Substance: MEROPENEM\SODIUM CHLORIDE
     Indication: Evidence based treatment
  2. VANCOMYCIN [Suspect]
     Active Substance: VANCOMYCIN
  3. COLISTIN [Suspect]
     Active Substance: COLISTIN
  4. Intravenous (IV) fluids [Concomitant]
  5. Inotropic support [Concomitant]
  6. PHENOBARBITAL [Concomitant]
     Active Substance: PHENOBARBITAL
  7. PHENYTOIN [Concomitant]
     Active Substance: PHENYTOIN
  8. LEVETIRACETAM [Concomitant]
     Active Substance: LEVETIRACETAM
  9. MIDAZOLAM [Concomitant]
     Active Substance: MIDAZOLAM
  10. AMPHOTERICIN B [Concomitant]
     Active Substance: AMPHOTERICIN B

REACTIONS (3)
  - Rhinocerebral mucormycosis [None]
  - Intraventricular haemorrhage neonatal [None]
  - Cerebral venous thrombosis [None]
